FAERS Safety Report 6246445-9 (Version None)
Quarter: 2009Q2

REPORT INFORMATION
  Report Type: 
  Country: None (occurrence: None)
  Receive Date: 20090626
  Receipt Date: 20090616
  Transmission Date: 20091009
  Serious: Yes (Death, Hospitalization)
  Sender: FDA-Public Use
  Company Number: CA-ROCHE-638753

PATIENT
  Sex: Female
  Weight: 78.3 kg

DRUGS (5)
  1. CAPECITABINE [Suspect]
     Indication: COLORECTAL CANCER
     Dosage: FORM: PILL, FREQUENCY: G/2HX140
     Route: 048
     Dates: start: 20090504
  2. HYDROCHLOROTHIAZIDE [Concomitant]
     Dates: start: 20040101
  3. FOSAVANCE [Concomitant]
     Dates: start: 20040101
  4. PREVACID [Concomitant]
     Dates: start: 19990101
  5. ATACAND [Concomitant]
     Dates: start: 20060101

REACTIONS (2)
  - ATRIAL FIBRILLATION [None]
  - DEATH [None]
